FAERS Safety Report 13421121 (Version 5)
Quarter: 2019Q1

REPORT INFORMATION
  Report Type: Report from Study
  Country: None (occurrence: US)
  Receive Date: 20170410
  Receipt Date: 20190114
  Transmission Date: 20190417
  Serious: Yes (Other)
  Sender: FDA-Public Use
  Company Number: US-ABBVIE-17K-163-1933442-00

PATIENT
  Age: 80 Year
  Sex: Male

DRUGS (3)
  1. HUMIRA [Suspect]
     Active Substance: ADALIMUMAB
     Indication: CROHN^S DISEASE
     Route: 058
     Dates: start: 201407
  2. TAMSULOSIN [Concomitant]
     Active Substance: TAMSULOSIN
     Indication: PRODUCT USED FOR UNKNOWN INDICATION
  3. LUCENTIS [Concomitant]
     Active Substance: RANIBIZUMAB
     Indication: RETINAL DEGENERATION

REACTIONS (9)
  - Nephrolithiasis [Recovering/Resolving]
  - Basosquamous carcinoma of skin [Not Recovered/Not Resolved]
  - Weight decreased [Unknown]
  - Productive cough [Not Recovered/Not Resolved]
  - Dry age-related macular degeneration [Not Recovered/Not Resolved]
  - Retinal degeneration [Not Recovered/Not Resolved]
  - Pulmonary pain [Unknown]
  - Lung disorder [Unknown]
  - Diverticulum [Not Recovered/Not Resolved]

NARRATIVE: CASE EVENT DATE: 201703
